FAERS Safety Report 19115094 (Version 1)
Quarter: 2021Q2

REPORT INFORMATION
  Report Type: Spontaneous
  Country: UA (occurrence: UA)
  Receive Date: 20210408
  Receipt Date: 20210408
  Transmission Date: 20210717
  Serious: Yes (Other)
  Sender: FDA-Public Use
  Company Number: UA-VALIDUS PHARMACEUTICALS LLC-UA-2021VAL000525

PATIENT
  Age: 73 Year
  Sex: Female

DRUGS (4)
  1. METFORMIN [Concomitant]
     Active Substance: METFORMIN HYDROCHLORIDE
     Indication: PRODUCT USED FOR UNKNOWN INDICATION
  2. ASPIRINE [Concomitant]
     Active Substance: ASPIRIN
     Indication: PRODUCT USED FOR UNKNOWN INDICATION
     Dosage: UNK
  3. TRENTAL [Suspect]
     Active Substance: PENTOXIFYLLINE
     Indication: DIABETIC NEUROPATHY
     Dosage: 200 MG, QD
     Route: 048
     Dates: start: 20180809, end: 20180809
  4. BISOPROLOL [Concomitant]
     Active Substance: BISOPROLOL
     Indication: PRODUCT USED FOR UNKNOWN INDICATION
     Dosage: UNK

REACTIONS (4)
  - Syncope [Recovered/Resolved]
  - Hypertensive crisis [Recovered/Resolved]
  - Blood pressure increased [Recovered/Resolved]
  - Hypoaesthesia [Recovered/Resolved]

NARRATIVE: CASE EVENT DATE: 20180809
